FAERS Safety Report 7505508-8 (Version None)
Quarter: 2011Q2

REPORT INFORMATION
  Report Type: 
  Country: None (occurrence: None)
  Receive Date: 20110526
  Receipt Date: 20110520
  Transmission Date: 20111010
  Serious: Yes (Other)
  Sender: FDA-Public Use
  Company Number: US-GILEAD-2011-0037396

PATIENT
  Sex: Female

DRUGS (5)
  1. LETAIRIS [Suspect]
     Indication: PULMONARY HYPERTENSION
     Route: 048
     Dates: start: 20080130
  2. LETAIRIS [Suspect]
     Indication: CONNECTIVE TISSUE DISORDER
  3. LETAIRIS [Suspect]
     Indication: SCLERODERMA
     Route: 048
     Dates: start: 20071116, end: 20080129
  4. ACETAMINOPHEN [Concomitant]
  5. TYLENOL W/ CODINE NO. 3 [Concomitant]

REACTIONS (1)
  - TRANSAMINASES INCREASED [None]
